FAERS Safety Report 11001768 (Version 2)
Quarter: 2015Q3

REPORT INFORMATION
  Report Type: Spontaneous
  Country: JP (occurrence: JP)
  Receive Date: 20150408
  Receipt Date: 20150702
  Transmission Date: 20151125
  Serious: Yes (Hospitalization)
  Sender: FDA-Public Use
  Company Number: JP-SA-2015SA043330

PATIENT
  Sex: Male

DRUGS (4)
  1. DIGOXIN. [Suspect]
     Active Substance: DIGOXIN
     Route: 048
  2. CARVEDILOL. [Suspect]
     Active Substance: CARVEDILOL
     Route: 048
  3. FUROSEMIDE. [Suspect]
     Active Substance: FUROSEMIDE
     Route: 048
  4. VALPROATE SODIUM. [Concomitant]
     Active Substance: VALPROATE SODIUM

REACTIONS (32)
  - Red blood cell count increased [Recovered/Resolved]
  - Haemoglobin increased [Recovered/Resolved]
  - Hepatic function abnormal [Recovered/Resolved]
  - Pyrexia [Recovered/Resolved]
  - Alanine aminotransferase increased [Recovered/Resolved]
  - Tachycardia [Recovered/Resolved]
  - Urine output decreased [Recovered/Resolved]
  - Blood pH increased [Recovered/Resolved]
  - Myoglobin urine present [Recovered/Resolved]
  - Depressed level of consciousness [Recovered/Resolved]
  - Aspartate aminotransferase increased [Recovered/Resolved]
  - Blood creatine phosphokinase increased [Recovered/Resolved]
  - Blood creatinine increased [Recovered/Resolved]
  - PO2 decreased [Recovered/Resolved]
  - Blood lactate dehydrogenase increased [Recovered/Resolved]
  - C-reactive protein increased [Recovered/Resolved]
  - Heart rate irregular [Recovered/Resolved]
  - Renal impairment [Recovered/Resolved]
  - Blood urea increased [Recovered/Resolved]
  - Thrombocytopenia [Recovered/Resolved]
  - Blood pressure decreased [Recovered/Resolved]
  - Tongue dry [Recovered/Resolved]
  - PCO2 decreased [Recovered/Resolved]
  - Myoglobin blood increased [Recovered/Resolved]
  - Glossoptosis [Recovered/Resolved]
  - Prothrombin time shortened [Recovered/Resolved]
  - Heat illness [Recovered/Resolved]
  - White blood cell count increased [Recovered/Resolved]
  - Hyperglycaemia [Recovered/Resolved]
  - Rhabdomyolysis [Recovered/Resolved]
  - Fibrin D dimer increased [Recovered/Resolved]
  - Urine ketone body present [Recovered/Resolved]
